FAERS Safety Report 5317437-9 (Version None)
Quarter: 2007Q2

REPORT INFORMATION
  Report Type: 
  Country: None (occurrence: None)
  Receive Date: 20070503
  Receipt Date: 20070503
  Transmission Date: 20071010
  Serious: No
  Sender: FDA-Public Use
  Company Number: None

PATIENT
  Age: 44 Year
  Sex: Female

DRUGS (2)
  1. TIGECYCLINE [Suspect]
     Indication: ABDOMINAL INFECTION
     Dosage: 100 MG X 1 50 MG
     Dates: start: 20070207, end: 20070215
  2. TIGECYCLINE [Suspect]
     Indication: ENTEROCOCCAL INFECTION
     Dosage: 100 MG X 1 50 MG
     Dates: start: 20070207, end: 20070215

REACTIONS (1)
  - PANCREATITIS [None]
